FAERS Safety Report 25640092 (Version 1)
Quarter: 2025Q3

REPORT INFORMATION
  Report Type: Spontaneous
  Country: GB (occurrence: GB)
  Receive Date: 20250804
  Receipt Date: 20250804
  Transmission Date: 20251020
  Serious: Yes (Hospitalization)
  Sender: TORRENT PHARMA INC.
  Company Number: None

PATIENT
  Age: 89 Year
  Sex: Female
  Weight: 58 kg

DRUGS (5)
  1. APIXABAN [Suspect]
     Active Substance: APIXABAN
     Indication: Product used for unknown indication
     Dosage: 5MG 2 TIMES A DAY (BD) ONE TO BE TAKEN TWICE A DAY, 56 TABLET -SUSPENDED
     Route: 065
     Dates: start: 20250512
  2. BISOPROLOL [Concomitant]
     Active Substance: BISOPROLOL
     Indication: Product used for unknown indication
     Dosage: ONE TO BE TAKEN ?EACH DAY,28 TABLET - TAKING
     Route: 065
     Dates: start: 20250512
  3. CHOLECALCIFEROL [Concomitant]
     Active Substance: CHOLECALCIFEROL
     Indication: Product used for unknown indication
     Dosage: 1 DAILY, 28 CAPSULE - TAKING
     Route: 065
     Dates: start: 20250512
  4. HYDROXOCOBALAMIN [Concomitant]
     Active Substance: HYDROXOCOBALAMIN
     Indication: Product used for unknown indication
     Route: 065
     Dates: start: 20241121
  5. INDAPAMIDE [Concomitant]
     Active Substance: INDAPAMIDE
     Indication: Product used for unknown indication
     Dosage: ONE TO BE TAKEN EACH ?MORNING,30 TABLET - TAKING
     Route: 065
     Dates: start: 20250512

REACTIONS (2)
  - Product prescribing issue [Unknown]
  - Epistaxis [Unknown]
